FAERS Safety Report 12170571 (Version 1)
Quarter: 2016Q1

REPORT INFORMATION
  Report Type: Spontaneous
  Country: PL (occurrence: PL)
  Receive Date: 20160311
  Receipt Date: 20160311
  Transmission Date: 20160526
  Serious: Yes (Death, Hospitalization)
  Sender: FDA-Public Use
  Company Number: PL-INDICUS PHARMA-000398

PATIENT
  Age: 34 Year
  Sex: Female

DRUGS (1)
  1. METFORMIN [Suspect]
     Active Substance: METFORMIN HYDROCHLORIDE

REACTIONS (5)
  - Hepatorenal syndrome [Fatal]
  - Toxicity to various agents [Fatal]
  - Completed suicide [Fatal]
  - Respiratory failure [Fatal]
  - Metabolic acidosis [Fatal]
